FAERS Safety Report 5456083-3 (Version None)
Quarter: 2007Q3

REPORT INFORMATION
  Report Type: 
  Country: None (occurrence: None)
  Receive Date: 20070917
  Receipt Date: 20070917
  Transmission Date: 20080115
  Serious: Yes (Life-Threatening, Hospitalization, Disabling)
  Sender: FDA-Public Use
  Company Number: None

PATIENT
  Sex: Male
  Weight: 65.7716 kg

DRUGS (1)
  1. ADVICOR [Suspect]
     Indication: BLOOD CHOLESTEROL
     Dosage: 500/20 ER DAILY
     Dates: start: 20040101, end: 20050101

REACTIONS (5)
  - HAEMORRHAGE [None]
  - MUSCLE RUPTURE [None]
  - MUSCLE SPASMS [None]
  - PARALYSIS [None]
  - THROMBOSIS [None]
